FAERS Safety Report 9487055 (Version 2)
Quarter: 2013Q3

REPORT INFORMATION
  Report Type: Report from Study
  Country: IN (occurrence: IN)
  Receive Date: 20130829
  Receipt Date: 20130829
  Transmission Date: 20140515
  Serious: Yes (Hospitalization)
  Sender: FDA-Public Use
  Company Number: PHHO2010IN01936

PATIENT
  Age: 58 Year
  Sex: Male

DRUGS (5)
  1. ALISKIREN [Suspect]
     Indication: CARDIOVASCULAR DISORDER
     Route: 048
     Dates: start: 20081218
  2. METOLAZONE [Suspect]
     Indication: POLYURIA
  3. TORASEMIDE [Suspect]
     Indication: FLUID OVERLOAD
  4. LISINOPRIL [Concomitant]
  5. ATORVASTATIN [Concomitant]

REACTIONS (15)
  - Left ventricular failure [Recovered/Resolved with Sequelae]
  - Myocardial ischaemia [Recovered/Resolved with Sequelae]
  - Ventricular hypokinesia [Recovered/Resolved with Sequelae]
  - Respiratory distress [Recovered/Resolved with Sequelae]
  - Renal failure acute [Recovered/Resolved]
  - Renal failure chronic [Recovered/Resolved]
  - Urinary tract infection [Recovering/Resolving]
  - Abdominal pain [Recovering/Resolving]
  - Nausea [Recovering/Resolving]
  - Concomitant disease progression [Recovered/Resolved]
  - Dyspnoea [Recovered/Resolved with Sequelae]
  - Urine output decreased [Recovered/Resolved]
  - Flank pain [Recovered/Resolved]
  - Blood urine present [Recovered/Resolved]
  - Proteinuria [Recovered/Resolved]
